FAERS Safety Report 7099626-9 (Version None)
Quarter: 2010Q4

REPORT INFORMATION
  Report Type: 
  Country: None (occurrence: None)
  Receive Date: 20101112
  Receipt Date: 20101103
  Transmission Date: 20110411
  Serious: Yes (Hospitalization)
  Sender: FDA-Public Use
  Company Number: US-CELGENEUS-163-21880-10110561

PATIENT
  Age: 87 Year
  Sex: Male
  Weight: 77.1 kg

DRUGS (9)
  1. REVLIMID [Suspect]
     Route: 048
     Dates: start: 20100907
  2. REVLIMID [Suspect]
     Route: 048
     Dates: start: 20101006, end: 20101023
  3. DEXAMETHASONE [Suspect]
     Route: 048
     Dates: start: 20100907
  4. DEXAMETHASONE [Suspect]
     Route: 048
     Dates: start: 20101006, end: 20101028
  5. ASPIRIN [Concomitant]
     Route: 048
     Dates: start: 20100907
  6. ASPIRIN [Concomitant]
     Route: 048
     Dates: start: 20101006
  7. TRAMADOL HCL [Concomitant]
     Indication: COMPRESSION FRACTURE
     Route: 065
  8. TRAMADOL HCL [Concomitant]
     Indication: PAIN
  9. MEDICATION [Concomitant]
     Indication: PAIN
     Route: 065

REACTIONS (3)
  - ASTHENIA [None]
  - DYSPHAGIA [None]
  - MUCOSAL INFLAMMATION [None]
